FAERS Safety Report 7487983-0 (Version None)
Quarter: 2011Q2

REPORT INFORMATION
  Report Type: 
  Country: None (occurrence: None)
  Receive Date: 20110518
  Receipt Date: 20110513
  Transmission Date: 20111010
  Serious: No
  Sender: FDA-Public Use
  Company Number: US-PFIZER INC-2011065854

PATIENT
  Sex: Female
  Weight: 54.4 kg

DRUGS (1)
  1. NEURONTIN [Suspect]
     Indication: OFF LABEL USE
     Dosage: 250 MG/ML, UNK
     Route: 048

REACTIONS (1)
  - PRODUCT TASTE ABNORMAL [None]
